FAERS Safety Report 7798429-7 (Version None)
Quarter: 2011Q4

REPORT INFORMATION
  Report Type: 
  Country: None (occurrence: None)
  Receive Date: 20111005
  Receipt Date: 20110926
  Transmission Date: 20120403
  Serious: No
  Sender: FDA-Public Use
  Company Number: US-ASTRAZENECA-2011SE37240

PATIENT
  Age: 65 Year
  Sex: Female

DRUGS (5)
  1. CRESTOR [Suspect]
     Route: 048
  2. ASPIRIN [Concomitant]
  3. NEXIUM [Interacting]
     Route: 048
  4. PLAVIX [Interacting]
  5. ASPIRIN [Concomitant]

REACTIONS (2)
  - PURPURA [None]
  - DRUG INTERACTION [None]
